FAERS Safety Report 21133907 (Version 1)
Quarter: 2022Q3

REPORT INFORMATION
  Report Type: Spontaneous
  Country: US (occurrence: US)
  Receive Date: 20220726
  Receipt Date: 20220726
  Transmission Date: 20221026
  Serious: No
  Sender: FDA-Public Use
  Company Number: US-OYSTER POINT PHARMA, INC.-2022OYS00457

PATIENT
  Sex: Female
  Weight: 59.421 kg

DRUGS (14)
  1. TYRVAYA [Suspect]
     Active Substance: VARENICLINE TARTRATE
     Indication: Dry eye
     Dosage: 1 SPRAY IN EACH NOSTRIL, 2X/DAY (12 HOURS APART)
     Route: 045
     Dates: start: 2022, end: 20220505
  2. TYRVAYA [Suspect]
     Active Substance: VARENICLINE TARTRATE
     Dosage: 1 SPRAY IN EACH NOSTRIL, 2X/DAY (12 HOURS APART)
     Route: 045
     Dates: start: 20220508
  3. PERCOCET [Concomitant]
     Active Substance: ACETAMINOPHEN\OXYCODONE HYDROCHLORIDE
     Dosage: ^5MG,^, 2X/DAY
  4. GABAPENTIN [Concomitant]
     Active Substance: GABAPENTIN
     Dosage: 1500 MG, 1X/DAY AT THE HOUR OF SLEEP
  5. KLONOPIN [Concomitant]
     Active Substance: CLONAZEPAM
     Dosage: 1 MG, 1X/DAY, AT HOUR OF SLEEP
  6. PROLIA [Concomitant]
     Active Substance: DENOSUMAB
     Dosage: UNK, 2X/YEAR
  7. PATANOL [Concomitant]
     Active Substance: OLOPATADINE HYDROCHLORIDE
     Dosage: UNK, AS NEEDED
  8. LACTULOSE [Concomitant]
     Active Substance: LACTULOSE
     Dosage: UNK, 1X/DAY
  9. FISH OIL\OMEGA-3 FATTY ACIDS [Concomitant]
     Active Substance: FISH OIL\OMEGA-3 FATTY ACIDS
     Dosage: 2400 MG, 1X/DAY
  10. VITAMINS [Concomitant]
     Active Substance: VITAMINS
  11. CITRACAL 1 [Concomitant]
  12. CITRUCEL [Concomitant]
     Active Substance: METHYLCELLULOSE (4000 MPA.S)
     Dosage: 3 TABLETS, 2X/DAY
  13. NARATRIPTAN [Concomitant]
     Active Substance: NARATRIPTAN HYDROCHLORIDE
     Dosage: 2.5 MG, 1X/DAY IF SHE HAS A MIGRAINE
  14. RELPAX [Concomitant]
     Active Substance: ELETRIPTAN HYDROBROMIDE
     Dosage: 40 MG, 1X/DAY IF SHE HAS A MIGRAINE

REACTIONS (11)
  - Migraine [Not Recovered/Not Resolved]
  - Headache [Not Recovered/Not Resolved]
  - Eye pain [Recovered/Resolved]
  - Gastroenteritis viral [Unknown]
  - Malaise [Unknown]
  - Diarrhoea [Recovered/Resolved]
  - Balance disorder [Recovered/Resolved]
  - Hyperventilation [Unknown]
  - Dysarthria [Unknown]
  - Photophobia [Not Recovered/Not Resolved]
  - Dizziness [Not Recovered/Not Resolved]

NARRATIVE: CASE EVENT DATE: 20220101
